FAERS Safety Report 6695764-0 (Version None)
Quarter: 2010Q2

REPORT INFORMATION
  Report Type: 
  Country: None (occurrence: None)
  Receive Date: 20100426
  Receipt Date: 20100420
  Transmission Date: 20101027
  Serious: Yes (Death)
  Sender: FDA-Public Use
  Company Number: US-JNJFOC-20100405703

PATIENT
  Age: 28 Year
  Sex: Male
  Weight: 71.67 kg

DRUGS (4)
  1. FENTANYL [Suspect]
     Indication: DRUG USE FOR UNKNOWN INDICATION
     Route: 048
  2. METHAMPHETAMINE HYDROCHLORIDE [Suspect]
     Indication: DRUG USE FOR UNKNOWN INDICATION
     Route: 065
  3. ALPRAZOLAM [Concomitant]
     Route: 065
  4. NORDIAZEPAM [Concomitant]
     Route: 065

REACTIONS (3)
  - ASPIRATION [None]
  - DRUG TOXICITY [None]
  - INTENTIONAL DRUG MISUSE [None]
